FAERS Safety Report 23764394 (Version 1)
Quarter: 2024Q2

REPORT INFORMATION
  Report Type: Spontaneous
  Country: US (occurrence: US)
  Receive Date: 20240420
  Receipt Date: 20240420
  Transmission Date: 20240716
  Serious: No
  Sender: FDA-Public Use
  Company Number: US-HALEON-2168105

PATIENT
  Sex: Female

DRUGS (1)
  1. PARODONTAX ACTIVE GUM HEALTH CLEAR MINT [Suspect]
     Active Substance: CETYLPYRIDINIUM CHLORIDE
     Indication: Product used for unknown indication
     Dosage: EXPDATE:20250131
     Dates: start: 202402, end: 2024

REACTIONS (2)
  - Tongue discolouration [Recovering/Resolving]
  - Tooth discolouration [Recovering/Resolving]

NARRATIVE: CASE EVENT DATE: 20240101
